FAERS Safety Report 19953585 (Version 1)
Quarter: 2021Q4

REPORT INFORMATION
  Report Type: Spontaneous
  Country: US (occurrence: US)
  Receive Date: 20211013
  Receipt Date: 20211013
  Transmission Date: 20220303
  Serious: Yes (Other)
  Sender: FDA-Public Use
  Company Number: US-MYLANLABS-2021M1071678

PATIENT
  Age: 74 Year
  Sex: Female
  Weight: 109 kg

DRUGS (1)
  1. YUPELRI [Suspect]
     Active Substance: REVEFENACIN
     Indication: Chronic obstructive pulmonary disease
     Dosage: UNK  (175MCG/ML)

REACTIONS (4)
  - Loss of consciousness [Unknown]
  - Visual impairment [Unknown]
  - Fall [Unknown]
  - Dizziness [Unknown]
